FAERS Safety Report 11889942 (Version 1)
Quarter: 2016Q1

REPORT INFORMATION
  Report Type: Spontaneous
  Country: US (occurrence: US)
  Receive Date: 20160105
  Receipt Date: 20160105
  Transmission Date: 20160526
  Serious: No
  Sender: FDA-Public Use
  Company Number: US-PERRIGO-15US006602

PATIENT
  Age: 80 Year
  Sex: Male
  Weight: 65.76 kg

DRUGS (1)
  1. GUAIFENESIN 600 MG 498 [Suspect]
     Active Substance: GUAIFENESIN
     Indication: PULMONARY CONGESTION
     Dosage: ONE TABLET, PRN
     Route: 048
     Dates: start: 201505, end: 201506

REACTIONS (2)
  - Foreign body [Recovered/Resolved]
  - Throat irritation [Recovered/Resolved]

NARRATIVE: CASE EVENT DATE: 201505
